FAERS Safety Report 6648076-5 (Version None)
Quarter: 2010Q1

REPORT INFORMATION
  Report Type: 
  Country: None (occurrence: None)
  Receive Date: 20100324
  Receipt Date: 20100318
  Transmission Date: 20100710
  Serious: Yes (Other)
  Sender: FDA-Public Use
  Company Number: PHHY2009BR54503

PATIENT
  Sex: Female

DRUGS (1)
  1. EXELON [Suspect]
     Dosage: 4.5 MG, UNK

REACTIONS (3)
  - FEELING ABNORMAL [None]
  - GASTROINTESTINAL SURGERY [None]
  - NAUSEA [None]
